FAERS Safety Report 9650845 (Version 2)
Quarter: 2013Q4

REPORT INFORMATION
  Report Type: Spontaneous
  Country: ES (occurrence: ES)
  Receive Date: 20131029
  Receipt Date: 20131108
  Transmission Date: 20140711
  Serious: Yes (Other)
  Sender: FDA-Public Use
  Company Number: ES-RANBAXY-2013RR-74634

PATIENT
  Age: 17 Year
  Sex: Male

DRUGS (1)
  1. AMOXICILLIN [Suspect]
     Indication: PERIODONTITIS
     Dosage: 500 MG, TID
     Route: 065

REACTIONS (2)
  - Generalised erythema [Recovered/Resolved]
  - Angioedema [Recovered/Resolved]
